FAERS Safety Report 18267703 (Version 1)
Quarter: 2020Q3

REPORT INFORMATION
  Report Type: Spontaneous
  Country: US (occurrence: US)
  Receive Date: 20200915
  Receipt Date: 20200915
  Transmission Date: 20201103
  Serious: Yes (Other)
  Sender: FDA-Public Use
  Company Number: US-HORIZON-ACT-0339-2020

PATIENT
  Age: 68 Year
  Sex: Female

DRUGS (10)
  1. ACTIMMUNE [Suspect]
     Active Substance: INTERFERON GAMMA-1B
     Indication: CUTANEOUS T-CELL LYMPHOMA
     Dosage: 0.5ML THREE TIMES WEEKLY
     Route: 058
  2. CARMUSTINE. [Concomitant]
     Active Substance: CARMUSTINE
  3. LEVOTHYROXINE SODIUM. [Concomitant]
     Active Substance: LEVOTHYROXINE SODIUM
  4. LISINOPRIL AND HYDROCHLOROTHIAZIDE [Concomitant]
     Active Substance: HYDROCHLOROTHIAZIDE\LISINOPRIL
  5. LOVASTATIN. [Concomitant]
     Active Substance: LOVASTATIN
  6. METOPROLOL SUCCINATE. [Concomitant]
     Active Substance: METOPROLOL SUCCINATE
  7. BEXAROTENE. [Concomitant]
     Active Substance: BEXAROTENE
  8. VITAMIN B12 [Concomitant]
     Active Substance: CYANOCOBALAMIN
  9. ZINC. [Concomitant]
     Active Substance: ZINC
  10. VITAMIN B6 [Concomitant]
     Active Substance: PYRIDOXINE HYDROCHLORIDE

REACTIONS (8)
  - Off label use [Unknown]
  - Pyrexia [Unknown]
  - Intentional product use issue [Unknown]
  - Renal failure [Unknown]
  - Inflammation [Unknown]
  - Pruritus [Unknown]
  - Influenza like illness [Recovered/Resolved]
  - Feeling hot [Unknown]
